FAERS Safety Report 7624158-6 (Version None)
Quarter: 2011Q3

REPORT INFORMATION
  Report Type: 
  Country: None (occurrence: None)
  Receive Date: 20110720
  Receipt Date: 20110713
  Transmission Date: 20111222
  Serious: Yes (Hospitalization)
  Sender: FDA-Public Use
  Company Number: US-TEVA-282326USA

PATIENT

DRUGS (1)
  1. BLEOMYCIN SULFATE [Suspect]

REACTIONS (7)
  - PYREXIA [None]
  - WHITE BLOOD CELL COUNT DECREASED [None]
  - NAUSEA [None]
  - HYPOTENSION [None]
  - CHILLS [None]
  - COLD SWEAT [None]
  - HYPERHIDROSIS [None]
